FAERS Safety Report 4277319-0 (Version None)
Quarter: 2004Q1

REPORT INFORMATION
  Report Type: 
  Country: None (occurrence: None)
  Receive Date: 20040120
  Receipt Date: 20040105
  Transmission Date: 20041129
  Serious: Yes (Hospitalization, Other)
  Sender: FDA-Public Use
  Company Number: 2003115539

PATIENT
  Age: 26 Year
  Sex: Female

DRUGS (6)
  1. ZELDOX (CAPSULES) (ZIPRASIDONE) [Suspect]
     Indication: SCHIZOPHRENIA, PARANOID TYPE
     Dosage: 160 MG (BID), ORAL
     Route: 048
     Dates: start: 20030930, end: 20031024
  2. ZOLPIDEM TARTRATE [Concomitant]
  3. DIAZEPAM [Concomitant]
  4. BIPERIDEN HYDROCHLORIDE TAB [Concomitant]
  5. INSULIN GLARGINE (INSULIN GLARGINE) [Concomitant]
  6. INSULIN [Concomitant]

REACTIONS (4)
  - DEPRESSED LEVEL OF CONSCIOUSNESS [None]
  - ELECTROENCEPHALOGRAM ABNORMAL [None]
  - LOSS OF CONSCIOUSNESS [None]
  - SOMNOLENCE [None]
